FAERS Safety Report 9380272 (Version 1)
Quarter: 2013Q2

REPORT INFORMATION
  Report Type: Spontaneous
  Country: GB (occurrence: None)
  Receive Date: 20130628
  Receipt Date: 20130628
  Transmission Date: 20140414
  Serious: Yes (Life-Threatening, Hospitalization)
  Sender: FDA-Public Use
  Company Number: GER/GER/13/0030181

PATIENT
  Age: 59 Year
  Sex: Female
  Weight: 170 kg

DRUGS (1)
  1. METFORMIN (METFORMIN) [Suspect]
     Indication: PRODUCT USED FOR UNKNOWN INDICATION
     Route: 048
     Dates: end: 20130226

REACTIONS (5)
  - Dehydration [None]
  - Diarrhoea [None]
  - Lactic acidosis [None]
  - Renal failure [None]
  - Shock [None]
